FAERS Safety Report 6734083-0 (Version None)
Quarter: 2010Q2

REPORT INFORMATION
  Report Type: 
  Country: None (occurrence: None)
  Receive Date: 20100520
  Receipt Date: 20100513
  Transmission Date: 20101027
  Serious: Yes (Other)
  Sender: FDA-Public Use
  Company Number: US-MERCK-1004USA04567

PATIENT
  Sex: Male

DRUGS (6)
  1. SINGULAIR [Suspect]
     Indication: ASTHMA
     Route: 048
     Dates: start: 20071001
  2. SINGULAIR [Suspect]
     Indication: HYPERSENSITIVITY
     Route: 048
     Dates: start: 20071001
  3. PULMICORT [Concomitant]
     Route: 065
  4. XOPENEX [Concomitant]
     Route: 065
  5. CLARITIN [Concomitant]
     Route: 065
  6. NASONEX [Concomitant]
     Route: 065

REACTIONS (5)
  - ENURESIS [None]
  - HOMICIDAL IDEATION [None]
  - INSOMNIA [None]
  - PARANOIA [None]
  - SUICIDAL IDEATION [None]
